FAERS Safety Report 5916953-6 (Version None)
Quarter: 2008Q4

REPORT INFORMATION
  Report Type: 
  Country: None (occurrence: None)
  Receive Date: 20081009
  Receipt Date: 20080926
  Transmission Date: 20090506
  Serious: Yes (Hospitalization)
  Sender: FDA-Public Use
  Company Number: 2008S1017588

PATIENT
  Age: 52 Year
  Sex: Female

DRUGS (2)
  1. PHENYTOIN SODIUM [Suspect]
     Dosage: 400 MG;DAILY;ORAL
     Route: 048
     Dates: start: 20080820
  2. ESTRADIOL [Concomitant]

REACTIONS (2)
  - ANTICONVULSANT DRUG LEVEL ABNORMAL [None]
  - ILL-DEFINED DISORDER [None]
